FAERS Safety Report 10723814 (Version 1)
Quarter: 2015Q1

REPORT INFORMATION
  Report Type: Spontaneous
  Country: DE (occurrence: DE)
  Receive Date: 20150120
  Receipt Date: 20150120
  Transmission Date: 20150721
  Serious: Yes (Hospitalization)
  Sender: FDA-Public Use
  Company Number: DE-MERZ NORTH AMERICA, INC.-15MRZ-00032

PATIENT
  Age: 37 Year
  Sex: Female

DRUGS (2)
  1. NUVARING [Concomitant]
     Active Substance: ETHINYL ESTRADIOL\ETONOGESTREL
     Indication: CONTRACEPTION
     Dosage: UNKNOWN
     Route: 067
  2. AETHOXYSKLEROL [Suspect]
     Active Substance: POLIDOCANOL
     Indication: VARICOSE VEIN
     Route: 042
     Dates: start: 20141007

REACTIONS (9)
  - Dyspnoea [None]
  - Tachycardia [None]
  - Tachypnoea [None]
  - Post thrombotic syndrome [None]
  - Pulmonary embolism [None]
  - Pain in extremity [None]
  - Venous thrombosis [None]
  - Peripheral swelling [None]
  - Pneumonia [None]
